FAERS Safety Report 23567766 (Version 1)
Quarter: 2024Q1

REPORT INFORMATION
  Report Type: Report from Study
  Country: US (occurrence: US)
  Receive Date: 20240226
  Receipt Date: 20240226
  Transmission Date: 20240410
  Serious: Yes (Other)
  Sender: FDA-Public Use
  Company Number: US-ABBVIE-5651610

PATIENT
  Sex: Female

DRUGS (1)
  1. SKYRIZI [Suspect]
     Active Substance: RISANKIZUMAB-RZAA
     Indication: Psoriasis
     Route: 058
     Dates: start: 20240130

REACTIONS (6)
  - Neoplasm malignant [Unknown]
  - Hypoaesthesia oral [Unknown]
  - Fatigue [Unknown]
  - Swollen tongue [Unknown]
  - Dental cleaning [Unknown]
  - Mouth swelling [Unknown]

NARRATIVE: CASE EVENT DATE: 20240101
